FAERS Safety Report 23563655 (Version 2)
Quarter: 2024Q1

REPORT INFORMATION
  Report Type: Spontaneous
  Country: BE (occurrence: BE)
  Receive Date: 20240226
  Receipt Date: 20240306
  Transmission Date: 20240410
  Serious: Yes (Other)
  Sender: FDA-Public Use
  Company Number: BE-BIOVITRUM-2024-BE-002625

PATIENT
  Age: 36 Year
  Sex: Female

DRUGS (1)
  1. DOPTELET [Suspect]
     Active Substance: AVATROMBOPAG MALEATE
     Indication: Immune thrombocytopenia
     Dosage: 40 MG PER DAY
     Dates: start: 202306

REACTIONS (1)
  - Antiphospholipid syndrome [Recovering/Resolving]

NARRATIVE: CASE EVENT DATE: 20240119
